FAERS Safety Report 21129622 (Version 2)
Quarter: 2022Q3

REPORT INFORMATION
  Report Type: Spontaneous
  Country: US (occurrence: US)
  Receive Date: 20220726
  Receipt Date: 20220820
  Transmission Date: 20221027
  Serious: Yes (Hospitalization, Other)
  Sender: FDA-Public Use
  Company Number: US-009507513-2207USA006288

PATIENT
  Sex: Male

DRUGS (2)
  1. VERQUVO [Suspect]
     Active Substance: VERICIGUAT
     Indication: Cardiac failure
     Dosage: UNKNOWN
     Route: 048
  2. AMIODARONE [Concomitant]
     Active Substance: AMIODARONE

REACTIONS (3)
  - Ventricular tachycardia [Unknown]
  - Vision blurred [Unknown]
  - Fatigue [Unknown]
